FAERS Safety Report 9121930 (Version 2)
Quarter: 2013Q2

REPORT INFORMATION
  Report Type: Spontaneous
  Country: US (occurrence: US)
  Receive Date: 20130227
  Receipt Date: 20130409
  Transmission Date: 20140414
  Serious: Yes (Other)
  Sender: FDA-Public Use
  Company Number: US-BAYER-2013-022265

PATIENT
  Age: 26 Year
  Sex: Female
  Weight: 64.9 kg

DRUGS (4)
  1. MIRENA [Suspect]
     Indication: CONTRACEPTION
     Dosage: 20 MCG/24HR, CONT
     Route: 015
     Dates: start: 20130110, end: 20130222
  2. MIRENA [Suspect]
     Indication: MENORRHAGIA
  3. TORADOL [Concomitant]
     Dosage: 30 MG, UNK
     Route: 030
  4. PARACERVICAL BLOCK [Concomitant]
     Dosage: 6 CC 1%

REACTIONS (3)
  - Device dislocation [Recovered/Resolved]
  - Abdominal pain lower [None]
  - Off label use [Recovered/Resolved]
